FAERS Safety Report 26021349 (Version 1)
Quarter: 2025Q4

REPORT INFORMATION
  Report Type: Spontaneous
  Country: CN (occurrence: CN)
  Receive Date: 20251110
  Receipt Date: 20251110
  Transmission Date: 20260118
  Serious: Yes (Hospitalization)
  Sender: ROCHE
  Company Number: CN-ROCHE-10000428274

PATIENT
  Age: 53 Year
  Sex: Female

DRUGS (2)
  1. TRASTUZUMAB [Suspect]
     Active Substance: TRASTUZUMAB
     Indication: Breast cancer
     Route: 042
     Dates: start: 20251018, end: 20251018
  2. DOCETAXEL [Suspect]
     Active Substance: DOCETAXEL
     Indication: Breast cancer
     Route: 042
     Dates: start: 20251019, end: 20251019

REACTIONS (3)
  - Myelosuppression [Recovering/Resolving]
  - Pyrexia [Unknown]
  - Upper respiratory tract congestion [Unknown]

NARRATIVE: CASE EVENT DATE: 20251029
